FAERS Safety Report 9863722 (Version 1)
Quarter: 2014Q1

REPORT INFORMATION
  Report Type: Spontaneous
  Country: US (occurrence: US)
  Receive Date: 20140203
  Receipt Date: 20140203
  Transmission Date: 20141002
  Serious: No
  Sender: FDA-Public Use
  Company Number: US-009507513-1401USA010555

PATIENT
  Sex: Female
  Weight: 73.92 kg

DRUGS (2)
  1. IMPLANON [Suspect]
     Indication: CONTRACEPTION
     Dosage: LEFT ARM
     Route: 058
     Dates: start: 20121108
  2. TYLENOL [Concomitant]

REACTIONS (5)
  - Migraine [Unknown]
  - Haemorrhage [Unknown]
  - Abdominal pain upper [Unknown]
  - Back pain [Unknown]
  - Depression [Unknown]
